FAERS Safety Report 9872297 (Version 1)
Quarter: 2014Q1

REPORT INFORMATION
  Report Type: Spontaneous
  Country: DE (occurrence: DE)
  Receive Date: 20140205
  Receipt Date: 20140205
  Transmission Date: 20141002
  Serious: Yes (Other)
  Sender: FDA-Public Use
  Company Number: DE-BRISTOL-MYERS SQUIBB COMPANY-20102216

PATIENT
  Sex: 0

DRUGS (2)
  1. YERVOY [Suspect]
     Indication: MALIGNANT MELANOMA
  2. YERVOY [Suspect]
     Indication: METASTASES TO LUNG

REACTIONS (4)
  - Pneumonia [Unknown]
  - Asthenia [Unknown]
  - Dizziness [Unknown]
  - Visual impairment [Unknown]
